APPROVED DRUG PRODUCT: CHLORZOXAZONE
Active Ingredient: CHLORZOXAZONE
Strength: 500MG
Dosage Form/Route: TABLET;ORAL
Application: A040113 | Product #001
Applicant: ACTAVIS ELIZABETH LLC
Approved: Sep 29, 1995 | RLD: No | RS: No | Type: DISCN